FAERS Safety Report 17396493 (Version 1)
Quarter: 2020Q1

REPORT INFORMATION
  Report Type: Spontaneous
  Country: US (occurrence: US)
  Receive Date: 20200210
  Receipt Date: 20200210
  Transmission Date: 20200409
  Serious: No
  Sender: FDA-Public Use
  Company Number: US-PFIZER INC-2020050681

PATIENT
  Age: 64 Year
  Sex: Male
  Weight: 163.29 kg

DRUGS (3)
  1. LEVOTHYROXINE SODIUM. [Suspect]
     Active Substance: LEVOTHYROXINE SODIUM
     Indication: HYPOMETABOLISM
  2. LOSARTAN. [Concomitant]
     Active Substance: LOSARTAN
     Indication: BLOOD PRESSURE MEASUREMENT
     Dosage: 50 MG, 1X/DAY
     Route: 048
  3. LEVOTHYROXINE SODIUM. [Suspect]
     Active Substance: LEVOTHYROXINE SODIUM
     Indication: HYPOTHYROIDISM
     Dosage: 175 UG, DAILY
     Route: 048

REACTIONS (6)
  - Fatigue [Unknown]
  - Therapeutic response unexpected [Unknown]
  - Drug ineffective [Unknown]
  - Alopecia [Unknown]
  - Dry skin [Unknown]
  - Mental fatigue [Unknown]
